FAERS Safety Report 16795190 (Version 2)
Quarter: 2019Q3

REPORT INFORMATION
  Report Type: Spontaneous
  Country: PL (occurrence: PL)
  Receive Date: 20190911
  Receipt Date: 20190920
  Transmission Date: 20191005
  Serious: Yes (Death)
  Sender: FDA-Public Use
  Company Number: PL-BAXTER-2019BAX017367

PATIENT

DRUGS (5)
  1. OXYTOCIN. [Concomitant]
     Active Substance: OXYTOCIN
     Route: 064
     Dates: start: 20080818
  2. SODU CHLOREK 0.9% BAXTER [Suspect]
     Active Substance: SODIUM CHLORIDE
     Indication: FOETAL EXPOSURE DURING PREGNANCY
     Route: 064
     Dates: start: 20080916
  3. SODU CHLOREK 0.9% BAXTER [Suspect]
     Active Substance: SODIUM CHLORIDE
     Dosage: SECOND TIME
     Route: 064
     Dates: start: 20080918
  4. OXYTOCIN. [Concomitant]
     Active Substance: OXYTOCIN
     Indication: FOETAL EXPOSURE DURING PREGNANCY
     Route: 064
     Dates: start: 20080916
  5. DINOPROSTONE. [Concomitant]
     Active Substance: DINOPROSTONE
     Indication: FOETAL EXPOSURE DURING PREGNANCY
     Route: 064

REACTIONS (2)
  - Foetal death [Fatal]
  - Foetal exposure during pregnancy [Unknown]

NARRATIVE: CASE EVENT DATE: 20080916
